FAERS Safety Report 8166587-0 (Version None)
Quarter: 2012Q1

REPORT INFORMATION
  Report Type: 
  Country: None (occurrence: None)
  Receive Date: 20120227
  Receipt Date: 20120223
  Transmission Date: 20120608
  Serious: Yes (Death, Hospitalization, Other)
  Sender: FDA-Public Use
  Company Number: NZ-B.I. PHARMACEUTICALS,INC./RIDGEFIELD-2011-AU-02460AU

PATIENT
  Sex: Male

DRUGS (9)
  1. DOXAZOSIN [Concomitant]
  2. TRAMADOL HCL [Concomitant]
  3. FUROSEMIDE [Concomitant]
  4. DOXEPIN HCL [Concomitant]
  5. FELODIPINE [Concomitant]
  6. CANDESARTAN CILEXETIL [Concomitant]
  7. ATORVASTATIN [Concomitant]
  8. ISOSORBIDE DINITRATE [Concomitant]
  9. PRADAXA [Suspect]
     Indication: ATRIAL FIBRILLATION
     Dosage: 300 MG
     Dates: start: 20110704, end: 20111206

REACTIONS (11)
  - RENAL FAILURE [None]
  - MULTI-ORGAN FAILURE [None]
  - SHOCK [None]
  - MYOCARDIAL INFARCTION [None]
  - HAEMATEMESIS [None]
  - PAIN IN EXTREMITY [None]
  - GASTROINTESTINAL HAEMORRHAGE [None]
  - ACUTE MYOCARDIAL INFARCTION [None]
  - HAEMATOMA [None]
  - MALAISE [None]
  - ANAEMIA [None]
